FAERS Safety Report 14321754 (Version 2)
Quarter: 2019Q3

REPORT INFORMATION
  Report Type: Spontaneous
  Country: US (occurrence: US)
  Receive Date: 20171224
  Receipt Date: 20190708
  Transmission Date: 20191004
  Serious: No
  Sender: FDA-Public Use
  Company Number: US-EMD SERONO-9003112

PATIENT
  Age: 35 Year
  Sex: Female

DRUGS (1)
  1. REBIF [Suspect]
     Active Substance: INTERFERON BETA-1A
     Indication: MULTIPLE SCLEROSIS
     Route: 058
     Dates: start: 20170228

REACTIONS (7)
  - Heat exhaustion [Unknown]
  - Product dose omission [Recovered/Resolved]
  - Fibrin D dimer increased [Unknown]
  - Pain [Unknown]
  - Multiple sclerosis relapse [Unknown]
  - Injection site atrophy [Unknown]
  - Injection site erythema [Unknown]

NARRATIVE: CASE EVENT DATE: 20171213
